FAERS Safety Report 9411240 (Version 1)
Quarter: 2013Q3

REPORT INFORMATION
  Report Type: Spontaneous
  Country: US (occurrence: US)
  Receive Date: 20130722
  Receipt Date: 20130722
  Transmission Date: 20140515
  Serious: Yes (Other)
  Sender: FDA-Public Use
  Company Number: US-AMGEN-USASP2013050120

PATIENT
  Age: 51 Year
  Sex: Female

DRUGS (4)
  1. XGEVA [Suspect]
     Indication: METASTASES TO BONE
     Dosage: UNK
     Dates: start: 201103
  2. XGEVA [Suspect]
     Indication: BREAST CANCER
  3. XELODA [Concomitant]
  4. ARIMIDEX [Concomitant]

REACTIONS (2)
  - Osteomyelitis [Unknown]
  - Tooth disorder [Unknown]
